FAERS Safety Report 4707355-9 (Version None)
Quarter: 2005Q3

REPORT INFORMATION
  Report Type: 
  Country: None (occurrence: None)
  Receive Date: 20050701
  Receipt Date: 20050701
  Transmission Date: 20060218
  Serious: Yes (Hospitalization, Other)
  Sender: FDA-Public Use
  Company Number: None

PATIENT
  Sex: Male
  Weight: 100 kg

DRUGS (4)
  1. CYCLOPHOSPHAMIDE [Suspect]
     Indication: ACUTE LYMPHOCYTIC LEUKAEMIA
     Dosage: 650 MG/M2 IV OVER 30 MIN ON DAYS 1,15,AND 29
     Route: 042
     Dates: start: 20050430, end: 20050620
  2. CYTARABINE [Suspect]
     Dosage: 75MG/M2 IV OVER 30 MIN QD ON DAYS 1-4,8-11, 15-18, AND 22-25
     Dates: end: 20050623
  3. MERCAPTOPURINE [Suspect]
     Dosage: 60 MG/M2 PO QD FOR 28 DAYS
     Route: 048
     Dates: end: 20050624
  4. METHOTREXATE [Suspect]
     Dosage: 12.5 MG IT ON DAYS 1,8,15, AND 22
     Route: 037
     Dates: end: 20050613

REACTIONS (4)
  - ARACHNOIDITIS [None]
  - HEADACHE [None]
  - NAUSEA [None]
  - PAIN [None]
